FAERS Safety Report 21853236 (Version 2)
Quarter: 2023Q4

REPORT INFORMATION
  Report Type: Spontaneous
  Country: BE (occurrence: BE)
  Receive Date: 20230112
  Receipt Date: 20231013
  Transmission Date: 20240110
  Serious: Yes (Disabling, Other)
  Sender: FDA-Public Use
  Company Number: None

PATIENT
  Age: 65 Year
  Sex: Male
  Weight: 83 kg

DRUGS (7)
  1. PRAMIPEXOLE [Suspect]
     Active Substance: PRAMIPEXOLE
     Indication: Parkinson^s disease
     Route: 048
  2. AKINETON [Suspect]
     Active Substance: BIPERIDEN HYDROCHLORIDE
     Indication: Parkinson^s disease
     Dosage: 2 TABLETS AT NOON + 1 TAB EVENING
     Route: 048
  3. Folavit 4 MG COMPRIM?S [Concomitant]
     Indication: Product used for unknown indication
  4. Nifedipine Retard EG 30 MG [Concomitant]
     Indication: Product used for unknown indication
  5. LIPITOR [Concomitant]
     Active Substance: ATORVASTATIN CALCIUM
     Indication: Product used for unknown indication
  6. ASPIRIN [Concomitant]
     Active Substance: ASPIRIN
     Indication: Product used for unknown indication
  7. D-CURE 25 000 UI [Concomitant]
     Indication: Product used for unknown indication

REACTIONS (3)
  - Hallucination [Not Recovered/Not Resolved]
  - Alcohol interaction [Not Recovered/Not Resolved]
  - Somnambulism [Not Recovered/Not Resolved]
